FAERS Safety Report 13050488 (Version 3)
Quarter: 2017Q3

REPORT INFORMATION
  Report Type: Spontaneous
  Country: US (occurrence: US)
  Receive Date: 20161221
  Receipt Date: 20170726
  Transmission Date: 20171127
  Serious: Yes (Other)
  Sender: FDA-Public Use
  Company Number: US-SHIRE-US201619081

PATIENT
  Age: 62 Year
  Sex: Female
  Weight: 56.69 kg

DRUGS (2)
  1. XIIDRA [Suspect]
     Active Substance: LIFITEGRAST
     Indication: DRY EYE
     Dosage: 1 GTT (IN BOTH EYES), 2X/DAY:BID
     Route: 047
     Dates: start: 20161109, end: 20161111
  2. RESTASIS [Concomitant]
     Active Substance: CYCLOSPORINE
     Indication: DRY EYE
     Dosage: TRIED AND FAILED

REACTIONS (10)
  - Eye discharge [Unknown]
  - Keratitis [Recovering/Resolving]
  - Loss of personal independence in daily activities [Unknown]
  - Headache [Unknown]
  - Blister [Recovering/Resolving]
  - Ulcerative keratitis [Recovering/Resolving]
  - Eyelid margin crusting [Unknown]
  - Vision blurred [Not Recovered/Not Resolved]
  - Wrong technique in product usage process [Recovered/Resolved]
  - Scar [Recovering/Resolving]

NARRATIVE: CASE EVENT DATE: 20161110
